FAERS Safety Report 4480599-X (Version None)
Quarter: 2004Q4

REPORT INFORMATION
  Report Type: 
  Country: None (occurrence: None)
  Receive Date: 20041019
  Receipt Date: 20041004
  Transmission Date: 20050328
  Serious: Yes (Hospitalization)
  Sender: FDA-Public Use
  Company Number: 2004-0007499

PATIENT
  Age: 49 Year
  Sex: Male
  Weight: 68.9467 kg

DRUGS (5)
  1. VIREAD [Suspect]
     Indication: HIV INFECTION
     Dosage: 300 MG, 1 IN 1 D, ORAL
     Route: 048
     Dates: start: 20021101, end: 20040505
  2. CRIXIVAN [Suspect]
     Indication: HIV INFECTION
     Dosage: 800 MG, 2 IN 1 D, ORAL
     Route: 048
     Dates: start: 19991001, end: 20040505
  3. RITONAVIR [Concomitant]
  4. VIDEX EC [Concomitant]
  5. SEPTRA DS [Concomitant]

REACTIONS (4)
  - BLOOD GLUCOSE INCREASED [None]
  - DIALYSIS [None]
  - PNEUMONIA [None]
  - RENAL FAILURE ACUTE [None]
